FAERS Safety Report 19251064 (Version 1)
Quarter: 2021Q2

REPORT INFORMATION
  Report Type: Other
  Country: CA (occurrence: CA)
  Receive Date: 20210512
  Receipt Date: 20210512
  Transmission Date: 20210717
  Serious: Yes (Death, Life-Threatening)
  Sender: FDA-Public Use
  Company Number: CA-NOSTRUM LABORATORIES, INC.-2110495

PATIENT
  Age: 5 Year
  Sex: Male
  Weight: 29 kg

DRUGS (1)
  1. ACETAMINOPHEN AND CODEINE [Suspect]
     Active Substance: ACETAMINOPHEN\CODEINE PHOSPHATE
     Indication: OROPHARYNGEAL PAIN
     Route: 048

REACTIONS (2)
  - Accidental overdose [Fatal]
  - Respiratory depression [Fatal]
